FAERS Safety Report 17618598 (Version 1)
Quarter: 2020Q2

REPORT INFORMATION
  Report Type: Spontaneous
  Country: US (occurrence: US)
  Receive Date: 20200402
  Receipt Date: 20200402
  Transmission Date: 20200713
  Serious: Yes (Death)
  Sender: FDA-Public Use
  Company Number: US-PERRIGO-20US004876

PATIENT
  Age: 78 Year
  Sex: Male

DRUGS (7)
  1. PREVACID 24 HR [Suspect]
     Active Substance: LANSOPRAZOLE
     Indication: GASTROOESOPHAGEAL REFLUX DISEASE
     Dosage: 15 MG, QD
     Route: 048
     Dates: start: 2003, end: 2015
  2. LANSOPRAZOLE. [Suspect]
     Active Substance: LANSOPRAZOLE
     Indication: GASTROOESOPHAGEAL REFLUX DISEASE
     Dosage: 30 MG, QD
     Route: 048
     Dates: start: 20130104, end: 201502
  3. NEXIUM [Suspect]
     Active Substance: ESOMEPRAZOLE MAGNESIUM
     Indication: GASTROOESOPHAGEAL REFLUX DISEASE
     Dosage: 20 MG, QD
     Route: 048
     Dates: start: 2014, end: 2015
  4. PREVACID 24 HR [Suspect]
     Active Substance: LANSOPRAZOLE
     Dosage: 30 MG, QD
     Route: 048
     Dates: start: 2003, end: 2015
  5. PREVACID [Suspect]
     Active Substance: LANSOPRAZOLE
     Indication: GASTROOESOPHAGEAL REFLUX DISEASE
     Dosage: 30 MG, QD
     Route: 048
     Dates: start: 20030404, end: 200705
  6. PROTONIX                           /00661201/ [Suspect]
     Active Substance: OMEPRAZOLE
     Indication: PRODUCT USED FOR UNKNOWN INDICATION
     Dosage: 40 MG, BID
     Route: 048
  7. PRILOSEC [Suspect]
     Active Substance: OMEPRAZOLE MAGNESIUM
     Indication: GASTROOESOPHAGEAL REFLUX DISEASE
     Dosage: 20 MG, QD
     Route: 048
     Dates: start: 2003, end: 2015

REACTIONS (21)
  - End stage renal disease [Fatal]
  - Nephropathy [Fatal]
  - Death [Fatal]
  - Chronic kidney disease [Fatal]
  - Hypertensive nephropathy [Fatal]
  - Dialysis [Fatal]
  - Perinephric oedema [Fatal]
  - Nephrogenic anaemia [Fatal]
  - Chronic kidney disease-mineral and bone disorder [Fatal]
  - Nephrosclerosis [Fatal]
  - Peritoneal dialysis [Fatal]
  - Renal failure [Fatal]
  - Haematuria [Fatal]
  - Acute kidney injury [Fatal]
  - Azotaemia [Fatal]
  - Haemodialysis [Fatal]
  - Pollakiuria [Fatal]
  - Diabetic end stage renal disease [Fatal]
  - Diabetic nephropathy [Fatal]
  - Nocturia [Fatal]
  - Renal cyst [Fatal]

NARRATIVE: CASE EVENT DATE: 20181016
